FAERS Safety Report 17240653 (Version 2)
Quarter: 2020Q1

REPORT INFORMATION
  Report Type: Report from Study
  Country: BR (occurrence: BR)
  Receive Date: 20200107
  Receipt Date: 20200207
  Transmission Date: 20200409
  Serious: Yes (Other)
  Sender: FDA-Public Use
  Company Number: BR-ROCHE-2512744

PATIENT
  Sex: Male

DRUGS (3)
  1. XOLAIR [Suspect]
     Active Substance: OMALIZUMAB
     Indication: URTICARIA
     Route: 065
     Dates: start: 20190919
  2. PURAN [Concomitant]
     Active Substance: LEVOTHYROXINE SODIUM
     Dosage: 200 MG
     Route: 065
  3. PURAN [Concomitant]
     Active Substance: LEVOTHYROXINE SODIUM
     Indication: THYROID DISORDER
     Route: 065

REACTIONS (13)
  - Cough [Recovered/Resolved]
  - Lymphocyte count decreased [Unknown]
  - Anaemia [Recovered/Resolved]
  - Blood disorder [Unknown]
  - Autoimmune thyroiditis [Recovered/Resolved]
  - Thyroid hormones increased [Recovered/Resolved]
  - Somnolence [Recovering/Resolving]
  - Vitamin D decreased [Not Recovered/Not Resolved]
  - Vitamin B12 decreased [Not Recovered/Not Resolved]
  - Dysphonia [Recovered/Resolved]
  - Immunodeficiency [Recovered/Resolved]
  - Red cell distribution width increased [Unknown]
  - Reticulocyte count increased [Unknown]
